FAERS Safety Report 9604070 (Version 2)
Quarter: 2013Q4

REPORT INFORMATION
  Report Type: Spontaneous
  Country: US (occurrence: US)
  Receive Date: 20131008
  Receipt Date: 20131026
  Transmission Date: 20140711
  Serious: Yes (Other)
  Sender: FDA-Public Use
  Company Number: US-MERCK-1310USA002024

PATIENT
  Sex: 0

DRUGS (1)
  1. INVANZ [Suspect]
     Indication: ABSCESS
     Dosage: 1 G, QD
     Route: 042

REACTIONS (2)
  - Brain oedema [Unknown]
  - Headache [Unknown]
